FAERS Safety Report 13582978 (Version 3)
Quarter: 2017Q3

REPORT INFORMATION
  Report Type: Spontaneous
  Country: US (occurrence: US)
  Receive Date: 20170525
  Receipt Date: 20170821
  Transmission Date: 20171127
  Serious: Yes (Other)
  Sender: FDA-Public Use
  Company Number: US-ALLERGAN-1721477US

PATIENT
  Age: 51 Year
  Sex: Male

DRUGS (1)
  1. KYBELLA [Suspect]
     Active Substance: DEOXYCHOLIC ACID
     Indication: FAT TISSUE INCREASED
     Dosage: 4 UNK, SINGLE
     Route: 058
     Dates: start: 20170517, end: 20170517

REACTIONS (1)
  - Cerebrovascular accident [Recovering/Resolving]
